FAERS Safety Report 6772204-4 (Version None)
Quarter: 2010Q2

REPORT INFORMATION
  Report Type: 
  Country: None (occurrence: None)
  Receive Date: 20100611
  Receipt Date: 20100601
  Transmission Date: 20101027
  Serious: Yes (Hospitalization)
  Sender: FDA-Public Use
  Company Number: ALD1-GB-2010-0029

PATIENT
  Age: 47 Year
  Sex: Male

DRUGS (1)
  1. METHYLDOPA [Suspect]
     Indication: HYPERTENSION
     Dosage: ORAL
     Route: 048
     Dates: start: 20090201, end: 20100508

REACTIONS (1)
  - ANAEMIA HAEMOLYTIC AUTOIMMUNE [None]
